FAERS Safety Report 9115395 (Version 1)
Quarter: 2013Q1

REPORT INFORMATION
  Report Type: Spontaneous
  Country: NL (occurrence: NL)
  Receive Date: 20130225
  Receipt Date: 20130225
  Transmission Date: 20140127
  Serious: Yes (Hospitalization)
  Sender: FDA-Public Use
  Company Number: NL-ASTRAZENECA-2013SE10766

PATIENT
  Age: 74 Year
  Sex: Female

DRUGS (4)
  1. OMEPRAZOL [Suspect]
     Indication: GASTROINTESTINAL DISORDER
     Route: 048
     Dates: start: 20110415, end: 20130120
  2. AMLODIPINE BESILATE [Concomitant]
     Route: 048
     Dates: start: 20120622
  3. ALENDRONINEZUUR [Concomitant]
     Route: 048
     Dates: start: 20110928, end: 20130120
  4. TRIAMTEREEN/HYDROCHLOORTHIAZIDE [Concomitant]
     Dosage: 50/25 MG DAILY
     Route: 048
     Dates: start: 20110425, end: 20130120

REACTIONS (1)
  - Tubulointerstitial nephritis [Recovering/Resolving]
